FAERS Safety Report 14970266 (Version 2)
Quarter: 2019Q3

REPORT INFORMATION
  Report Type: Spontaneous
  Country: US (occurrence: US)
  Receive Date: 20180604
  Receipt Date: 20190909
  Transmission Date: 20191004
  Serious: Yes (Hospitalization)
  Sender: FDA-Public Use
  Company Number: US-VIFOR (INTERNATIONAL) INC.-VIT-2018-04953

PATIENT
  Sex: Male

DRUGS (20)
  1. MAGNESIUM OXIDE. [Concomitant]
     Active Substance: MAGNESIUM OXIDE
  2. ROSUVASTATIN CALCIUM. [Concomitant]
     Active Substance: ROSUVASTATIN CALCIUM
  3. LACTULOSE. [Concomitant]
     Active Substance: LACTULOSE
  4. PLAVIX [Concomitant]
     Active Substance: CLOPIDOGREL BISULFATE
  5. NOVOLOG MIX 70/30 [Concomitant]
     Active Substance: INSULIN ASPART
  6. GABAPENTIN. [Concomitant]
     Active Substance: GABAPENTIN
  7. SYNTHROID [Concomitant]
     Active Substance: LEVOTHYROXINE SODIUM
  8. VITAMIN D3 [Concomitant]
     Active Substance: CHOLECALCIFEROL
  9. SULFASALAZINE. [Concomitant]
     Active Substance: SULFASALAZINE
  10. VITAMIN B12 [Concomitant]
     Active Substance: CYANOCOBALAMIN
  11. VITAMIN E [Concomitant]
     Active Substance: .ALPHA.-TOCOPHEROL
  12. FERROUS SULFATE. [Concomitant]
     Active Substance: FERROUS SULFATE
  13. CARVEDILOL. [Concomitant]
     Active Substance: CARVEDILOL
  14. FOLIC ACID. [Concomitant]
     Active Substance: FOLIC ACID
  15. VALSARTAN. [Concomitant]
     Active Substance: VALSARTAN
  16. ULORIC [Concomitant]
     Active Substance: FEBUXOSTAT
  17. LORATADINE. [Concomitant]
     Active Substance: LORATADINE
  18. TORSEMIDE. [Concomitant]
     Active Substance: TORSEMIDE
  19. VELTASSA [Suspect]
     Active Substance: PATIROMER
     Indication: HYPERKALAEMIA
     Route: 048
     Dates: start: 20180307
  20. FINASTERIDE. [Concomitant]
     Active Substance: FINASTERIDE

REACTIONS (2)
  - Urinary tract infection [Unknown]
  - Psoriasis [Unknown]

NARRATIVE: CASE EVENT DATE: 2018
